FAERS Safety Report 6052893-2 (Version None)
Quarter: 2009Q1

REPORT INFORMATION
  Report Type: 
  Country: None (occurrence: None)
  Receive Date: 20090127
  Receipt Date: 20080731
  Transmission Date: 20090719
  Serious: No
  Sender: FDA-Public Use
  Company Number: US-ABBOTT-08P-163-0467274-00

PATIENT
  Sex: Male

DRUGS (3)
  1. LUPRON DEPOT [Suspect]
     Indication: PROSTATE CANCER
     Route: 030
     Dates: start: 20060101
  2. LUPRON DEPOT [Suspect]
  3. BICALUTAMIDE [Concomitant]
     Indication: PROSTATE CANCER

REACTIONS (2)
  - DEVICE MALFUNCTION [None]
  - UNDERDOSE [None]
